FAERS Safety Report 12813048 (Version 1)
Quarter: 2016Q4

REPORT INFORMATION
  Report Type: Spontaneous
  Country: US (occurrence: US)
  Receive Date: 20161005
  Receipt Date: 20161005
  Transmission Date: 20170207
  Serious: No
  Sender: FDA-Public Use
  Company Number: US-AMGEN-USASP2016013401

PATIENT
  Age: 78 Year
  Sex: Female

DRUGS (1)
  1. PROLIA [Suspect]
     Active Substance: DENOSUMAB
     Indication: OSTEOPOROSIS POSTMENOPAUSAL
     Dosage: UNK, Q6MO
     Route: 065

REACTIONS (7)
  - Burning sensation [Unknown]
  - Feeling abnormal [Unknown]
  - Arthritis [Unknown]
  - Pain [Not Recovered/Not Resolved]
  - Fibromyalgia [Unknown]
  - Blister [Not Recovered/Not Resolved]
  - Gait disturbance [Unknown]
